FAERS Safety Report 9892578 (Version 1)
Quarter: 2014Q1

REPORT INFORMATION
  Report Type: Spontaneous
  Country: BG (occurrence: BG)
  Receive Date: 20140212
  Receipt Date: 20140212
  Transmission Date: 20141002
  Serious: Yes (Death, Hospitalization)
  Sender: FDA-Public Use
  Company Number: PHHY2014BG014612

PATIENT
  Age: 63 Year
  Sex: Female

DRUGS (1)
  1. METHOTREXATE [Suspect]
     Indication: RHEUMATOID ARTHRITIS
     Dosage: 10 MG, QW
     Route: 048

REACTIONS (15)
  - Death [Fatal]
  - Tachycardia [Unknown]
  - Hypoalbuminaemia [Unknown]
  - Concomitant disease aggravated [Unknown]
  - Pneumonitis [Unknown]
  - Pyrexia [Unknown]
  - Dyspnoea [Unknown]
  - Tachypnoea [Unknown]
  - Renal failure acute [Unknown]
  - Anuria [Unknown]
  - Somnolence [Unknown]
  - Agranulocytosis [Unknown]
  - Bone marrow failure [Unknown]
  - Rheumatoid factor increased [Unknown]
  - Hypotension [Unknown]
